FAERS Safety Report 17535456 (Version 2)
Quarter: 2020Q1

REPORT INFORMATION
  Report Type: Spontaneous
  Country: US (occurrence: US)
  Receive Date: 20200313
  Receipt Date: 20200318
  Transmission Date: 20200409
  Serious: No
  Sender: FDA-Public Use
  Company Number: US-AMGEN INC.-USASP2020038761

PATIENT
  Age: 52 Year
  Sex: Female

DRUGS (1)
  1. AIMOVIG [Suspect]
     Active Substance: ERENUMAB-AOOE
     Indication: NERVOUS SYSTEM DISORDER
     Dosage: 70 MILLIGRAM
     Route: 065
     Dates: start: 2020

REACTIONS (4)
  - Device defective [Unknown]
  - Wrong technique in device usage process [Unknown]
  - Injection site pain [Unknown]
  - Product use in unapproved indication [Unknown]

NARRATIVE: CASE EVENT DATE: 2020
